FAERS Safety Report 6429157-8 (Version None)
Quarter: 2009Q4

REPORT INFORMATION
  Report Type: 
  Country: None (occurrence: None)
  Receive Date: 20091030
  Receipt Date: 20091016
  Transmission Date: 20100525
  Serious: Yes (Death, Other)
  Sender: FDA-Public Use
  Company Number: PAR_03200_2009

PATIENT
  Sex: Female
  Weight: 62.5964 kg

DRUGS (21)
  1. MEGACE ES [Suspect]
     Indication: DECREASED APPETITE
     Dosage: (5 ML, 625 MG/ML)
     Dates: start: 20081120, end: 20090325
  2. QUESTRAN [Suspect]
     Indication: DRUG USE FOR UNKNOWN INDICATION
     Dosage: (1 DF TID, WITH WATER)
  3. COUMADIN [Suspect]
     Indication: DEEP VEIN THROMBOSIS
     Dosage: (DF) ; (6 MG)
     Dates: start: 20090201, end: 20090201
  4. COUMADIN [Suspect]
     Indication: DEEP VEIN THROMBOSIS
     Dosage: (DF) ; (6 MG)
     Dates: start: 20090301, end: 20090310
  5. DUONEB [Concomitant]
  6. ROBITUSSIN /00048001/ [Concomitant]
  7. METHADONE HCL [Concomitant]
  8. LORCET-HD [Concomitant]
  9. VITAMIN A [Concomitant]
  10. KLONOPIN [Concomitant]
  11. ZOFRAN [Concomitant]
  12. LEVSIN [Concomitant]
  13. LYRICA [Concomitant]
  14. DOXEPIN HCL [Concomitant]
  15. FLORA-Q [Concomitant]
  16. DEPAKOTE [Concomitant]
  17. CYMBALTA [Concomitant]
  18. PREDNISONE [Concomitant]
  19. ATENOLOL [Concomitant]
  20. SYNTHROID [Concomitant]
  21. MUCINEX D [Concomitant]

REACTIONS (12)
  - ABDOMINAL PAIN [None]
  - COAGULOPATHY [None]
  - DEEP VEIN THROMBOSIS [None]
  - DIARRHOEA [None]
  - ELECTROLYTE IMBALANCE [None]
  - FAECALOMA [None]
  - INTERNATIONAL NORMALISED RATIO INCREASED [None]
  - NAUSEA [None]
  - OEDEMA PERIPHERAL [None]
  - PAIN [None]
  - PAIN IN EXTREMITY [None]
  - VOMITING [None]
